FAERS Safety Report 6285533-8 (Version None)
Quarter: 2009Q3

REPORT INFORMATION
  Report Type: 
  Country: None (occurrence: None)
  Receive Date: 20090727
  Receipt Date: 20090624
  Transmission Date: 20100115
  Serious: No
  Sender: FDA-Public Use
  Company Number: US-BAYER-200911984BCC

PATIENT
  Age: 69 Year
  Sex: Female
  Weight: 68 kg

DRUGS (4)
  1. ALEVE [Suspect]
     Indication: MUSCULOSKELETAL PAIN
     Dosage: TOTAL DAILY DOSE: 440 MG  UNIT DOSE: 220 MG
     Route: 048
     Dates: start: 20090601, end: 20090601
  2. ALEVE [Suspect]
     Route: 048
     Dates: start: 20090601
  3. NEXIUM [Concomitant]
     Route: 065
  4. PRESCRIPTION ANALGESICS [Concomitant]
     Route: 065

REACTIONS (2)
  - FOREIGN BODY TRAUMA [None]
  - ORAL DISCOMFORT [None]
